FAERS Safety Report 17825757 (Version 1)
Quarter: 2020Q2

REPORT INFORMATION
  Report Type: Spontaneous
  Country: GR (occurrence: GR)
  Receive Date: 20200526
  Receipt Date: 20200526
  Transmission Date: 20200714
  Serious: Yes (Hospitalization)
  Sender: FDA-Public Use
  Company Number: GR-PRINSTON PHARMACEUTICAL INC.-2020PRN00184

PATIENT
  Age: 13 Month
  Sex: Female

DRUGS (1)
  1. ARIPIPRAZOLE. [Suspect]
     Active Substance: ARIPIPRAZOLE
     Dosage: 1 TABLETS, ONCE
     Route: 048

REACTIONS (2)
  - Encephalopathy [Recovered/Resolved]
  - Accidental overdose [Recovered/Resolved]
